FAERS Safety Report 5329710-9 (Version None)
Quarter: 2007Q2

REPORT INFORMATION
  Report Type: 
  Country: None (occurrence: None)
  Receive Date: 20070521
  Receipt Date: 20070511
  Transmission Date: 20071010
  Serious: Yes (Hospitalization, Other)
  Sender: FDA-Public Use
  Company Number: FR-BRISTOL-MYERS SQUIBB COMPANY-13782289

PATIENT
  Age: 57 Year
  Sex: Female

DRUGS (11)
  1. GLUCOPHAGE [Suspect]
     Indication: DIABETES MELLITUS NON-INSULIN-DEPENDENT
     Route: 048
     Dates: start: 20041101
  2. IMODIUM [Suspect]
     Dates: start: 20060101
  3. LYTOS [Suspect]
  4. ALIMTA [Suspect]
     Indication: METASTATIC BRONCHIAL CARCINOMA
     Route: 051
     Dates: start: 20070201, end: 20070222
  5. TARCEVA [Suspect]
     Dates: start: 20060101, end: 20070401
  6. MICARDIS [Suspect]
     Route: 048
     Dates: start: 20051201
  7. ALUMINUM HYDROXIDE AND MAGNESIUM TRISILICATE [Concomitant]
  8. GRANOCYTE [Concomitant]
     Indication: PROPHYLAXIS
  9. NEORECORMON [Concomitant]
     Indication: PROPHYLAXIS
  10. FOLIC ACID [Concomitant]
     Indication: PROPHYLAXIS
  11. VITAMIN B-12 [Concomitant]
     Indication: PROPHYLAXIS

REACTIONS (4)
  - LUNG ADENOCARCINOMA METASTATIC [None]
  - PANCYTOPENIA [None]
  - RENAL FAILURE ACUTE [None]
  - SYSTEMIC CANDIDA [None]
